FAERS Safety Report 5281061-7 (Version None)
Quarter: 2007Q1

REPORT INFORMATION
  Report Type: 
  Country: None (occurrence: None)
  Receive Date: 20061229
  Receipt Date: 20061024
  Transmission Date: 20070707
  Serious: No
  Sender: FDA-Public Use
  Company Number: 2006UW20506

PATIENT
  Age: 59 Year
  Sex: Male
  Weight: 84 kg

DRUGS (14)
  1. CRESTOR [Suspect]
     Indication: HYPERLIPIDAEMIA
     Dosage: 10 MG QD PO
     Route: 048
     Dates: start: 20040214, end: 20050217
  2. AGI-1067-042 [Suspect]
     Indication: ARTERIOSCLEROSIS CORONARY ARTERY
     Dosage: BLINED
     Dates: start: 20041122, end: 20050217
  3. CLONAZEPAM [Concomitant]
  4. DIAZEPAM [Concomitant]
  5. EFFEXOR [Concomitant]
  6. ASPIRIN [Concomitant]
  7. LISINOPRIL [Concomitant]
  8. PLAVIX [Concomitant]
  9. WELLBUTRIN [Concomitant]
  10. UROXATRAL [Concomitant]
  11. NEXIUM ORAL [Concomitant]
  12. NITROGLYCERIN [Concomitant]
  13. ZETIA [Concomitant]
  14. IBUPROFEN [Concomitant]

REACTIONS (1)
  - HEPATITIS [None]
